FAERS Safety Report 7241534-4 (Version None)
Quarter: 2011Q1

REPORT INFORMATION
  Report Type: 
  Country: None (occurrence: None)
  Receive Date: 20110124
  Receipt Date: 20110118
  Transmission Date: 20110831
  Serious: Yes (Hospitalization)
  Sender: FDA-Public Use
  Company Number: FR-ABBOTT-11P-056-0699267-00

PATIENT
  Age: 62 Year
  Sex: Female

DRUGS (2)
  1. DEPAKENE [Suspect]
     Indication: EPILEPSY
     Dosage: 30MG DAILY
     Route: 048
     Dates: start: 19900101
  2. CAMELLIA SINENSIS [Suspect]
     Indication: PRODUCT USED FOR UNKNOWN INDICATION
     Dates: start: 20100410, end: 20100414

REACTIONS (2)
  - HEPATOCELLULAR INJURY [None]
  - CYTOLYTIC HEPATITIS [None]
